FAERS Safety Report 15767783 (Version 1)
Quarter: 2018Q4

REPORT INFORMATION
  Report Type: Report from Study
  Country: US (occurrence: US)
  Receive Date: 20181227
  Receipt Date: 20181227
  Transmission Date: 20190205
  Serious: Yes (Other)
  Sender: FDA-Public Use
  Company Number: US-OTSUKA-2018_039954

PATIENT
  Sex: Male

DRUGS (1)
  1. TOLVAPTAN [Suspect]
     Active Substance: TOLVAPTAN
     Indication: CONGENITAL CYSTIC KIDNEY DISEASE
     Dosage: UNK
     Route: 065
     Dates: start: 2018

REACTIONS (6)
  - Blood bilirubin increased [Unknown]
  - Thirst [Unknown]
  - Faeces discoloured [Unknown]
  - Blood urine present [Unknown]
  - Dehydration [Unknown]
  - Cyst rupture [Unknown]

NARRATIVE: CASE EVENT DATE: 2018
